FAERS Safety Report 24552278 (Version 2)
Quarter: 2025Q2

REPORT INFORMATION
  Report Type: Spontaneous
  Country: FR (occurrence: FR)
  Receive Date: 20241026
  Receipt Date: 20250423
  Transmission Date: 20250716
  Serious: No
  Sender: TEVA
  Company Number: None

PATIENT
  Age: 71 Year
  Sex: Female
  Weight: 59.8 kg

DRUGS (2)
  1. CAPECITABINE [Suspect]
     Active Substance: CAPECITABINE
     Indication: Pancreatic carcinoma
     Dosage: 500 MG IN THE MORNING, 600 MG IN THE EVENING
     Route: 048
     Dates: start: 20231101
  2. TEMODAL [Suspect]
     Active Substance: TEMOZOLOMIDE
     Indication: Pancreatic carcinoma
     Route: 048
     Dates: start: 20231101

REACTIONS (3)
  - Dyspnoea [Recovered/Resolved]
  - Eyelid oedema [Recovering/Resolving]
  - Laryngeal discomfort [Recovered/Resolved]

NARRATIVE: CASE EVENT DATE: 20240910
